FAERS Safety Report 4870181-4 (Version None)
Quarter: 2005Q4

REPORT INFORMATION
  Report Type: 
  Country: None (occurrence: None)
  Receive Date: 20051228
  Receipt Date: 20051214
  Transmission Date: 20060501
  Serious: Yes (Death, Life-Threatening)
  Sender: FDA-Public Use
  Company Number: RENA-11352

PATIENT
  Age: 58 Year
  Sex: Male
  Weight: 57.5 kg

DRUGS (11)
  1. RENAGEL [Suspect]
     Indication: HYPERPHOSPHATAEMIA
     Dosage: 1 G TID; PO
     Route: 048
     Dates: start: 20050326, end: 20050330
  2. GLAKAY (MENATETRENONE) [Concomitant]
  3. KENTAN (LOXOPROFEN SODIUM) [Concomitant]
  4. LOSARTAN POTASSIUM [Concomitant]
  5. FAMOTIDINE [Concomitant]
  6. NIPOLAZIN [Concomitant]
  7. HALCION [Concomitant]
  8. NITRAZEPAM [Concomitant]
  9. CALCIUM CARBONATE [Concomitant]
  10. GLYCLAMIN [Concomitant]
  11. POLARAMINE [Concomitant]

REACTIONS (13)
  - BONE GRAFT [None]
  - ENTERITIS [None]
  - GASTRITIS [None]
  - HAEMODIALYSIS [None]
  - ILEUS [None]
  - INTESTINAL FISTULA [None]
  - INTESTINAL ISCHAEMIA [None]
  - LARGE INTESTINE PERFORATION [None]
  - PERITONITIS [None]
  - POST PROCEDURAL COMPLICATION [None]
  - PROCEDURAL PAIN [None]
  - STAPHYLOCOCCAL SEPSIS [None]
  - SUBCUTANEOUS ABSCESS [None]
